FAERS Safety Report 19250485 (Version 2)
Quarter: 2021Q2

REPORT INFORMATION
  Report Type: Spontaneous
  Country: GR (occurrence: GR)
  Receive Date: 20210513
  Receipt Date: 20210528
  Transmission Date: 20210717
  Serious: Yes (Other)
  Sender: FDA-Public Use
  Company Number: GR-ABBVIE-21K-066-3903037-00

PATIENT
  Sex: Male
  Weight: 78 kg

DRUGS (4)
  1. VALTREX [Concomitant]
     Active Substance: VALACYCLOVIR HYDROCHLORIDE
     Indication: HERPES VIRUS INFECTION
     Route: 065
     Dates: start: 201812, end: 20210421
  2. ZYLAPOUR [Concomitant]
     Active Substance: ALLOPURINOL
     Indication: DIURETIC THERAPY
     Route: 065
     Dates: start: 201812, end: 20210421
  3. BACTRIMEL [Concomitant]
     Active Substance: SULFAMETHOXAZOLE\TRIMETHOPRIM
     Indication: PRODUCT USED FOR UNKNOWN INDICATION
     Route: 065
     Dates: start: 201812, end: 20210421
  4. IMBRUVICA [Suspect]
     Active Substance: IBRUTINIB
     Indication: CHRONIC LYMPHOCYTIC LEUKAEMIA
     Route: 048
     Dates: end: 20210429

REACTIONS (6)
  - White blood cell count decreased [Recovered/Resolved]
  - Thirst [Recovered/Resolved]
  - Pleural effusion [Unknown]
  - Pericardial effusion [Recovered/Resolved]
  - Pericarditis [Unknown]
  - Pulmonary oedema [Recovered/Resolved]
